FAERS Safety Report 11122625 (Version 1)
Quarter: 2015Q2

REPORT INFORMATION
  Report Type: Spontaneous
  Country: CH (occurrence: CH)
  Receive Date: 20150519
  Receipt Date: 20150519
  Transmission Date: 20150821
  Serious: Yes (Life-Threatening, Hospitalization)
  Sender: FDA-Public Use
  Company Number: CH-SA-2015SA064208

PATIENT
  Sex: Female

DRUGS (15)
  1. PLAQUENIL [Interacting]
     Active Substance: HYDROXYCHLOROQUINE SULFATE
     Indication: SYSTEMIC LUPUS ERYTHEMATOSUS
     Route: 048
     Dates: end: 20150409
  2. DOSPIR [Interacting]
     Active Substance: ALBUTEROL SULFATE\IPRATROPIUM BROMIDE
     Indication: BRONCHITIS CHRONIC
     Route: 055
     Dates: end: 20150409
  3. BELOC ZOK [Interacting]
     Active Substance: METOPROLOL SUCCINATE
     Indication: HYPERTENSION
     Route: 048
     Dates: end: 201504
  4. MOVICOL [Interacting]
     Active Substance: POLYETHYLENE GLYCOL 3350\POTASSIUM CHLORIDE\SODIUM BICARBONATE\SODIUM CHLORIDE
     Dosage: FORM: POWDERS
     Route: 048
     Dates: end: 20150409
  5. OXYCONTIN [Concomitant]
     Active Substance: OXYCODONE HYDROCHLORIDE
     Route: 048
  6. TRITTICO [Interacting]
     Active Substance: TRAZODONE HYDROCHLORIDE
     Route: 048
     Dates: end: 20150409
  7. RIMACTAN [Concomitant]
     Active Substance: RIFAMPIN
     Route: 048
  8. PANTOZOL [Concomitant]
     Active Substance: PANTOPRAZOLE SODIUM
     Route: 048
  9. RASILEZ [Concomitant]
     Active Substance: ALISKIREN
     Route: 048
  10. DAFALGAN [Concomitant]
     Active Substance: ACETAMINOPHEN
     Route: 048
  11. FRAGMIN [Concomitant]
     Active Substance: DALTEPARIN SODIUM
     Route: 058
  12. LASIX [Suspect]
     Active Substance: FUROSEMIDE
     Indication: HYPERTENSION
     Route: 048
     Dates: end: 20150409
  13. FLOXAPEN [Concomitant]
     Active Substance: FLUCLOXACILLIN
     Route: 042
     Dates: end: 20150405
  14. SEROQUEL [Interacting]
     Active Substance: QUETIAPINE FUMARATE
     Dosage: STRENGTH: 25 MG
     Route: 048
     Dates: end: 20150409
  15. CIPROXIN [Interacting]
     Active Substance: CIPROFLOXACIN
     Indication: DEVICE RELATED INFECTION
     Route: 048
     Dates: start: 20150405, end: 20150409

REACTIONS (6)
  - Drug interaction [Unknown]
  - Torsade de pointes [Recovered/Resolved]
  - Hypomagnesaemia [Recovering/Resolving]
  - Long QT syndrome [Recovered/Resolved]
  - Hypokalaemia [Recovered/Resolved]
  - Bradycardia [Recovered/Resolved]

NARRATIVE: CASE EVENT DATE: 201504
